FAERS Safety Report 6077939-7 (Version None)
Quarter: 2009Q1

REPORT INFORMATION
  Report Type: 
  Country: None (occurrence: None)
  Receive Date: 20090213
  Receipt Date: 20090130
  Transmission Date: 20090719
  Serious: Yes (Other)
  Sender: FDA-Public Use
  Company Number: CL-ROCHE-612448

PATIENT
  Sex: Female

DRUGS (1)
  1. CAPECITABINE [Suspect]
     Indication: COLON CANCER
     Dosage: FOR 2 WEEKS FOLLOWED BY 7 DAY REST PERIOD.
     Route: 065

REACTIONS (3)
  - AGEUSIA [None]
  - APTYALISM [None]
  - PLATELET COUNT DECREASED [None]
